FAERS Safety Report 9269500 (Version 1)
Quarter: 2013Q2

REPORT INFORMATION
  Report Type: Spontaneous
  Country: US (occurrence: US)
  Receive Date: 20130503
  Receipt Date: 20130503
  Transmission Date: 20140414
  Serious: Yes (Other)
  Sender: FDA-Public Use
  Company Number: US-PFIZER INC-2013136761

PATIENT
  Age: 59 Year
  Sex: Female

DRUGS (6)
  1. LYRICA [Suspect]
     Dosage: 1 DF, 2X/DAY
  2. LISINOPRIL [Concomitant]
     Dosage: UNK
  3. PROZAC [Concomitant]
     Dosage: UNK
  4. OMEPRAZOLE [Concomitant]
     Dosage: UNK
  5. ATIVAN [Concomitant]
     Dosage: UNK
  6. CLONAZEPAM [Concomitant]
     Dosage: UNK

REACTIONS (2)
  - Bedridden [Unknown]
  - Malaise [Unknown]
